FAERS Safety Report 5990744-2 (Version None)
Quarter: 2008Q4

REPORT INFORMATION
  Report Type: 
  Country: None (occurrence: None)
  Receive Date: 20081211
  Receipt Date: 20081201
  Transmission Date: 20090506
  Serious: Yes (Other)
  Sender: FDA-Public Use
  Company Number: IT-WATSON-2008-07068

PATIENT
  Age: 4 Year
  Sex: Male

DRUGS (4)
  1. DEXAMETHASONE TAB [Suspect]
     Indication: LEUKAEMIA
     Dosage: UNK
  2. DOXORUBICIN [Suspect]
     Indication: LEUKAEMIA
     Dosage: UNK
  3. VINCRISTINE [Suspect]
     Indication: LEUKAEMIA
     Dosage: UNK
  4. ELSPAR [Suspect]
     Indication: LEUKAEMIA
     Dosage: UNK

REACTIONS (6)
  - ELECTROENCEPHALOGRAM ABNORMAL [None]
  - ENCEPHALOPATHY [None]
  - EYE DISORDER [None]
  - GRAND MAL CONVULSION [None]
  - MYDRIASIS [None]
  - NUCLEAR MAGNETIC RESONANCE IMAGING BRAIN NORMAL [None]
